FAERS Safety Report 8355989-5 (Version None)
Quarter: 2012Q2

REPORT INFORMATION
  Report Type: 
  Country: None (occurrence: None)
  Receive Date: 20120514
  Receipt Date: 20120502
  Transmission Date: 20120825
  Serious: Yes (Other)
  Sender: FDA-Public Use
  Company Number: FR-JNJFOC-20120504534

PATIENT
  Sex: Female

DRUGS (1)
  1. REMICADE [Suspect]
     Indication: RHEUMATOID ARTHRITIS
     Route: 042
     Dates: end: 20120401

REACTIONS (4)
  - RASH [None]
  - INFUSION RELATED REACTION [None]
  - OEDEMA MOUTH [None]
  - BLOOD PRESSURE DECREASED [None]
